FAERS Safety Report 21859067 (Version 1)
Quarter: 2023Q1

REPORT INFORMATION
  Report Type: Spontaneous
  Country: US (occurrence: US)
  Receive Date: 20230113
  Receipt Date: 20230113
  Transmission Date: 20230418
  Serious: Yes (Other)
  Sender: FDA-Public Use
  Company Number: US-BRISTOL-MYERS SQUIBB COMPANY-2023-005769

PATIENT
  Age: 69 Year
  Sex: Male
  Weight: 106.59 kg

DRUGS (1)
  1. ELIQUIS [Suspect]
     Active Substance: APIXABAN
     Indication: Cerebrovascular accident prophylaxis
     Dosage: DOSE: 10 MG; FREQ: 1 HALF OF A TABLET AT NIGHT
     Route: 048
     Dates: start: 2022

REACTIONS (2)
  - Treatment noncompliance [Unknown]
  - Haemorrhage [Unknown]
